FAERS Safety Report 23141261 (Version 4)
Quarter: 2024Q1

REPORT INFORMATION
  Report Type: Report from Study
  Country: US (occurrence: US)
  Receive Date: 20231103
  Receipt Date: 20240221
  Transmission Date: 20240410
  Serious: Yes (Death, Hospitalization)
  Sender: FDA-Public Use
  Company Number: US-TAIHOP-2023-009259

PATIENT
  Age: 73 Year
  Sex: Male

DRUGS (2)
  1. LONSURF [Suspect]
     Active Substance: TIPIRACIL HYDROCHLORIDE\TRIFLURIDINE
     Indication: Colon cancer metastatic
     Dosage: CYCLE UNKNOWN
     Route: 048
     Dates: start: 20231009, end: 20231026
  2. HOME O2 [Concomitant]
     Indication: Chronic respiratory failure

REACTIONS (8)
  - Death [Fatal]
  - Acute respiratory failure [Unknown]
  - Acute pulmonary oedema [Unknown]
  - Disease progression [Unknown]
  - Septic shock [Unknown]
  - Pneumonia [Unknown]
  - Anaemia [Unknown]
  - Immunosuppression [Unknown]

NARRATIVE: CASE EVENT DATE: 20231028
